FAERS Safety Report 4499254-5 (Version None)
Quarter: 2004Q4

REPORT INFORMATION
  Report Type: 
  Country: None (occurrence: None)
  Receive Date: 20041111
  Receipt Date: 20041103
  Transmission Date: 20050328
  Serious: Yes (Disabling)
  Sender: FDA-Public Use
  Company Number: PHBS2004IT14953

PATIENT
  Age: 43 Year
  Sex: Female

DRUGS (3)
  1. ZOMETA [Suspect]
     Indication: METASTASES TO BONE
     Dosage: 4 MG, QMO
     Route: 042
     Dates: start: 20020501, end: 20040901
  2. PAMIDRONATE DISODIUM [Suspect]
     Indication: METASTASES TO BONE
     Dosage: 60 MG, QMO
     Route: 065
     Dates: start: 19990501, end: 20020501
  3. AROMASIN [Concomitant]
     Dosage: 25 MG/D
     Route: 048

REACTIONS (2)
  - ORAL INFECTION [None]
  - TOOTH EXTRACTION [None]
